FAERS Safety Report 4810843-8 (Version None)
Quarter: 2005Q4

REPORT INFORMATION
  Report Type: 
  Country: None (occurrence: None)
  Receive Date: 20051024
  Receipt Date: 20051011
  Transmission Date: 20060501
  Serious: Yes (Other)
  Sender: FDA-Public Use
  Company Number: 2004117930

PATIENT
  Sex: Male
  Weight: 122.4712 kg

DRUGS (3)
  1. CELEBREX [Suspect]
     Indication: ARTHRALGIA
     Dosage: 200 MG (200 MG, 1 IN 1 D), ORAL
     Route: 048
     Dates: start: 19990101
  2. CELEBREX [Suspect]
     Indication: OSTEOARTHRITIS
     Dosage: 200 MG (200 MG, 1 IN 1 D), ORAL
     Route: 048
     Dates: start: 19990101
  3. LOZOL [Concomitant]

REACTIONS (4)
  - CONDITION AGGRAVATED [None]
  - DIFFICULTY IN WALKING [None]
  - EXOSTOSIS [None]
  - OSTEOARTHRITIS [None]
